FAERS Safety Report 9753239 (Version 2)
Quarter: 2013Q4

REPORT INFORMATION
  Report Type: Spontaneous
  Country: US (occurrence: US)
  Receive Date: 20131213
  Receipt Date: 20131213
  Transmission Date: 20140711
  Serious: No
  Sender: FDA-Public Use
  Company Number: US-GILEAD-2010-0027630

PATIENT
  Sex: Female
  Weight: 95.25 kg

DRUGS (13)
  1. LETAIRIS [Suspect]
     Indication: PULMONARY ARTERIAL HYPERTENSION
     Route: 048
     Dates: start: 20090406
  2. OXYGEN [Concomitant]
  3. ECOTRIN [Concomitant]
  4. INDAPAMIDE [Concomitant]
  5. MAVIK [Concomitant]
  6. ADVAIR [Concomitant]
  7. SPIRIVA [Concomitant]
  8. ALBUTEROL SULFATE [Concomitant]
  9. MUCINEX [Concomitant]
  10. PEPCID AC [Concomitant]
  11. MIRALAX [Concomitant]
  12. MILK OF MAGNESIA [Concomitant]
  13. CENTRUM SLILVER [Concomitant]

REACTIONS (3)
  - Ventilation perfusion mismatch [Unknown]
  - Hypoxia [Unknown]
  - Unevaluable event [Unknown]
